FAERS Safety Report 7692944-2 (Version None)
Quarter: 2011Q3

REPORT INFORMATION
  Report Type: 
  Country: None (occurrence: None)
  Receive Date: 20110819
  Receipt Date: 20110714
  Transmission Date: 20111222
  Serious: No
  Sender: FDA-Public Use
  Company Number: US-BAYER-2011-057822

PATIENT
  Age: 40 Year
  Sex: Male

DRUGS (4)
  1. BETASERON [Suspect]
     Indication: MULTIPLE SCLEROSIS
     Dosage: 2 MIU, QOD
     Route: 058
     Dates: start: 20110628
  2. BETASERON [Suspect]
     Dosage: 4 MIU, QOD
     Route: 058
  3. IBUPROFEN [Concomitant]
  4. VICODIN [Concomitant]

REACTIONS (5)
  - INJECTION SITE HAEMORRHAGE [None]
  - INSOMNIA [None]
  - INJECTION SITE HAEMATOMA [None]
  - INITIAL INSOMNIA [None]
  - NAUSEA [None]
